FAERS Safety Report 20741147 (Version 1)
Quarter: 2022Q2

REPORT INFORMATION
  Report Type: Spontaneous
  Country: None (occurrence: US)
  Receive Date: 20220422
  Receipt Date: 20220422
  Transmission Date: 20220720
  Serious: Yes (Other)
  Sender: FDA-Public Use
  Company Number: US-The Mentholatum Company-2128085

PATIENT
  Age: 62 Year
  Sex: Female
  Weight: 68.182 kg

DRUGS (1)
  1. ROHTO MAX STRENGTH [Suspect]
     Active Substance: NAPHAZOLINE HYDROCHLORIDE\POLYSORBATE 80
     Indication: Ocular hyperaemia
     Route: 047
     Dates: start: 20220415

REACTIONS (3)
  - Eye haemorrhage [Recovering/Resolving]
  - Eye irritation [Recovering/Resolving]
  - Ocular hyperaemia [Recovering/Resolving]

NARRATIVE: CASE EVENT DATE: 20220415
